FAERS Safety Report 5977719-4 (Version None)
Quarter: 2008Q4

REPORT INFORMATION
  Report Type: 
  Country: None (occurrence: None)
  Receive Date: 20081203
  Receipt Date: 20081125
  Transmission Date: 20090506
  Serious: Yes (Other)
  Sender: FDA-Public Use
  Company Number: HR-JNJFOC-20080900478

PATIENT
  Sex: Male
  Weight: 72 kg

DRUGS (13)
  1. TMC114 [Suspect]
     Route: 048
  2. TMC114 [Suspect]
     Route: 048
  3. TMC114 [Suspect]
     Route: 048
  4. TMC114 [Suspect]
     Indication: ACQUIRED IMMUNODEFICIENCY SYNDROME
     Route: 048
  5. NORVIR [Suspect]
     Indication: ACQUIRED IMMUNODEFICIENCY SYNDROME
     Route: 048
  6. COMBIVIR [Concomitant]
  7. COMBIVIR [Concomitant]
  8. COMBIVIR [Concomitant]
  9. COMBIVIR [Concomitant]
  10. COMBIVIR [Concomitant]
     Indication: HIV INFECTION
  11. RALTEGRAVIR [Concomitant]
  12. RALTEGRAVIR [Concomitant]
     Indication: HIV INFECTION
  13. KALETRA [Concomitant]
     Indication: HIV INFECTION

REACTIONS (1)
  - GASTRITIS EROSIVE [None]
